FAERS Safety Report 10650255 (Version 1)
Quarter: 2014Q4

REPORT INFORMATION
  Report Type: Spontaneous
  Country: US (occurrence: US)
  Receive Date: 20141212
  Receipt Date: 20141212
  Transmission Date: 20150529
  Serious: Yes (Death, Hospitalization, Other)
  Sender: FDA-Public Use
  Company Number: US-GLAXOSMITHKLINE-US2014GSK035099

PATIENT

DRUGS (2)
  1. ROSIGLITAZONE [Suspect]
     Active Substance: ROSIGLITAZONE
     Indication: DIABETES MELLITUS
     Dosage: 8 MG, UNK
     Route: 048
     Dates: start: 200102, end: 200502
  2. AVANDIA [Suspect]
     Active Substance: ROSIGLITAZONE MALEATE
     Indication: DIABETES MELLITUS
     Dosage: 8 MG, UNK
     Route: 048
     Dates: start: 199912, end: 200705

REACTIONS (7)
  - Ischaemic cardiomyopathy [Unknown]
  - Cardio-respiratory arrest [Unknown]
  - Arteriosclerosis coronary artery [Fatal]
  - Cardiac failure congestive [Fatal]
  - Myocardial infarction [Unknown]
  - Coronary artery disease [Fatal]
  - Atrioventricular block first degree [Unknown]
